FAERS Safety Report 21495849 (Version 1)
Quarter: 2022Q4

REPORT INFORMATION
  Report Type: Spontaneous
  Country: US (occurrence: US)
  Receive Date: 20221022
  Receipt Date: 20221022
  Transmission Date: 20230112
  Serious: Yes (Hospitalization, Other)
  Sender: FDA-Public Use
  Company Number: US-CIPLA LTD.-2022US06147

PATIENT
  Sex: Male

DRUGS (2)
  1. GEMCITABINE [Suspect]
     Active Substance: GEMCITABINE
     Indication: Chemotherapy
     Dosage: UNK
     Route: 065
  2. CARBOPLATIN [Suspect]
     Active Substance: CARBOPLATIN
     Indication: Chemotherapy
     Dosage: UNK
     Route: 065

REACTIONS (10)
  - Pneumonia [Unknown]
  - Therapy non-responder [Unknown]
  - Adverse event [Unknown]
  - Neutropenia [Unknown]
  - Nausea [Unknown]
  - Insomnia [Unknown]
  - Fatigue [Unknown]
  - Gait inability [Unknown]
  - Disorientation [Unknown]
  - Dyspnoea [Unknown]
